FAERS Safety Report 5319088-9 (Version None)
Quarter: 2007Q1

REPORT INFORMATION
  Report Type: 
  Country: None (occurrence: None)
  Receive Date: 20070202
  Receipt Date: 20060926
  Transmission Date: 20070707
  Serious: No
  Sender: FDA-Public Use
  Company Number: 253438

PATIENT
  Sex: Male
  Weight: 79.4 kg

DRUGS (6)
  1. NOVOLOG [Suspect]
     Indication: DIABETES MELLITUS INSULIN-DEPENDENT
     Dosage: 6-8 LU SLIDING SCALE, SUBCUTANEOUS
     Route: 058
     Dates: start: 20040101
  2. LANTUS [Concomitant]
  3. ZOCOR [Concomitant]
  4. ACCUPRIL [Concomitant]
  5. SYNTHROID [Concomitant]
  6. ATENOLOL [Concomitant]

REACTIONS (1)
  - BLOOD GLUCOSE DECREASED [None]
